FAERS Safety Report 7351347-0 (Version None)
Quarter: 2011Q1

REPORT INFORMATION
  Report Type: 
  Country: None (occurrence: None)
  Receive Date: 20110314
  Receipt Date: 20110301
  Transmission Date: 20110831
  Serious: Yes (Hospitalization)
  Sender: FDA-Public Use
  Company Number: PHHY2011US17212

PATIENT
  Sex: Female

DRUGS (1)
  1. EXJADE [Suspect]
     Indication: SICKLE CELL ANAEMIA
     Dosage: 1000 MG, QD
     Route: 048
     Dates: start: 20070417, end: 20110201

REACTIONS (4)
  - SICKLE CELL ANAEMIA WITH CRISIS [None]
  - BACK PAIN [None]
  - ABDOMINAL PAIN UPPER [None]
  - VASOCONSTRICTION [None]
